FAERS Safety Report 8114159-6 (Version None)
Quarter: 2012Q1

REPORT INFORMATION
  Report Type: 
  Country: None (occurrence: None)
  Receive Date: 20120205
  Receipt Date: 20120127
  Transmission Date: 20120608
  Serious: Yes (Other)
  Sender: FDA-Public Use
  Company Number: PHHY2012IN007300

PATIENT
  Age: 50 Year
  Sex: Female

DRUGS (4)
  1. METRONIDAZOLE [Suspect]
     Indication: DIARRHOEA
  2. NORFLOXACIN [Concomitant]
     Indication: DIARRHOEA
  3. TINIDAZOLE [Suspect]
     Indication: DIARRHOEA
  4. LOPERAMIDE HCL [Concomitant]
     Indication: DIARRHOEA

REACTIONS (7)
  - PARAESTHESIA [None]
  - VASCULITIS [None]
  - AXONAL NEUROPATHY [None]
  - GAIT DISTURBANCE [None]
  - NEUROPATHY PERIPHERAL [None]
  - ENCEPHALOPATHY [None]
  - ASTHENIA [None]
